FAERS Safety Report 5860636-8 (Version None)
Quarter: 2008Q3

REPORT INFORMATION
  Report Type: 
  Country: None (occurrence: None)
  Receive Date: 20080827
  Receipt Date: 20071010
  Transmission Date: 20090109
  Serious: No
  Sender: FDA-Public Use
  Company Number: US-ABBOTT-07P-163-0420091-00

PATIENT
  Sex: Male

DRUGS (3)
  1. COATED PDS [Suspect]
     Indication: BLOOD TRIGLYCERIDES INCREASED
     Dosage: COATED
     Route: 048
     Dates: start: 20070808, end: 20070920
  2. COATED PDS [Suspect]
     Dosage: WHITE
     Route: 048
     Dates: start: 20061113, end: 20070807
  3. ACETYLSALICYLIC ACID SRT [Concomitant]
     Indication: DRUG USE FOR UNKNOWN INDICATION
     Route: 048

REACTIONS (1)
  - PRURITUS [None]
